FAERS Safety Report 17408052 (Version 4)
Quarter: 2020Q1

REPORT INFORMATION
  Report Type: Report from Study
  Country: MX (occurrence: MX)
  Receive Date: 20200212
  Receipt Date: 20200309
  Transmission Date: 20200409
  Serious: Yes (Death, Hospitalization)
  Sender: FDA-Public Use
  Company Number: NVSC2020MX037958

PATIENT
  Sex: Female

DRUGS (3)
  1. GLIBENCLAMIDE [Concomitant]
     Active Substance: GLYBURIDE
     Indication: PRODUCT USED FOR UNKNOWN INDICATION
     Dosage: 0.5 DF, Q12H
     Route: 065
  2. NILOTINIB [Suspect]
     Active Substance: NILOTINIB
     Indication: CHRONIC MYELOID LEUKAEMIA
     Dosage: 800 MG, Q24H
     Route: 048
     Dates: start: 20141031, end: 201912
  3. METFORMIN [Suspect]
     Active Substance: METFORMIN HYDROCHLORIDE
     Indication: DIABETES MELLITUS
     Dosage: 1 DF, Q24H
     Route: 065
     Dates: start: 2000

REACTIONS (5)
  - Nephropathy [Fatal]
  - Inappropriate schedule of product administration [Unknown]
  - Hyperglycaemic hyperosmolar nonketotic syndrome [Fatal]
  - Status epilepticus [Fatal]
  - Product prescribing error [Unknown]
